FAERS Safety Report 17676566 (Version 1)
Quarter: 2020Q2

REPORT INFORMATION
  Report Type: Spontaneous
  Country: US (occurrence: US)
  Receive Date: 20200416
  Receipt Date: 20200416
  Transmission Date: 20200714
  Serious: No
  Sender: FDA-Public Use
  Company Number: None

PATIENT
  Age: 43 Year
  Sex: Female
  Weight: 59.4 kg

DRUGS (19)
  1. KEPPRA [Concomitant]
     Active Substance: LEVETIRACETAM
  2. SENNA [Concomitant]
     Active Substance: SENNA LEAF\SENNOSIDES\SENNOSIDES A AND B
  3. COLACE [Concomitant]
     Active Substance: DOCUSATE SODIUM
  4. AMMONIUM LACTATE. [Concomitant]
     Active Substance: AMMONIUM LACTATE
  5. VITAMIN C [Concomitant]
     Active Substance: ASCORBIC ACID
  6. DEXAMETHASONE. [Concomitant]
     Active Substance: DEXAMETHASONE
  7. OMEPRAZOLE. [Concomitant]
     Active Substance: OMEPRAZOLE
  8. NORCO [Concomitant]
     Active Substance: ACETAMINOPHEN\HYDROCODONE BITARTRATE
  9. PROVERA [Concomitant]
     Active Substance: MEDROXYPROGESTERONE ACETATE
  10. FOLIC ACID. [Concomitant]
     Active Substance: FOLIC ACID
  11. POMALYST [Concomitant]
     Active Substance: POMALIDOMIDE
     Dates: end: 20200129
  12. XPOVIO [Suspect]
     Active Substance: SELINEXOR
     Indication: PLASMA CELL MYELOMA
     Dosage: ?          OTHER FREQUENCY:EVERY WEEK;?
     Route: 048
     Dates: start: 20200122, end: 20200416
  13. ACYCLOVIR. [Concomitant]
     Active Substance: ACYCLOVIR
  14. BACTRIM [Concomitant]
     Active Substance: SULFAMETHOXAZOLE\TRIMETHOPRIM
  15. FERROUS SULFATE. [Concomitant]
     Active Substance: FERROUS SULFATE
  16. NINLARO [Concomitant]
     Active Substance: IXAZOMIB CITRATE
     Dates: end: 20200129
  17. CALCIUM D [Concomitant]
     Active Substance: CALCIUM\VITAMIN D
  18. LAMICTAL [Concomitant]
     Active Substance: LAMOTRIGINE
  19. TOPAMAX [Concomitant]
     Active Substance: TOPIRAMATE

REACTIONS (2)
  - Pancytopenia [None]
  - Therapy change [None]

NARRATIVE: CASE EVENT DATE: 20200416
